FAERS Safety Report 9120589 (Version 1)
Quarter: 2013Q1

REPORT INFORMATION
  Report Type: Spontaneous
  Country: US (occurrence: US)
  Receive Date: 20130226
  Receipt Date: 20130226
  Transmission Date: 20140127
  Serious: No
  Sender: FDA-Public Use
  Company Number: US-TEVA-388285USA

PATIENT
  Sex: Male

DRUGS (2)
  1. NUVIGIL [Suspect]
     Indication: SLEEP APNOEA SYNDROME
     Dosage: 125 MILLIGRAM DAILY;
     Route: 048
     Dates: start: 20130222
  2. UNKNOWN [Concomitant]
     Indication: HYPERTENSION

REACTIONS (1)
  - Restlessness [Not Recovered/Not Resolved]
